FAERS Safety Report 9785457 (Version 1)
Quarter: 2013Q4

REPORT INFORMATION
  Report Type: Spontaneous
  Country: US (occurrence: US)
  Receive Date: 20131227
  Receipt Date: 20131227
  Transmission Date: 20140711
  Serious: Yes (Other)
  Sender: FDA-Public Use
  Company Number: US-MYLANLABS-2013S1015430

PATIENT
  Sex: 0

DRUGS (3)
  1. LEVETIRACETAM TABLETS [Suspect]
     Indication: CONVULSION
  2. TEGRETOL [Suspect]
     Indication: CONVULSION
  3. LAMICTAL [Suspect]
     Indication: CONVULSION

REACTIONS (2)
  - Drug ineffective [Not Recovered/Not Resolved]
  - Convulsion [Recovering/Resolving]
